FAERS Safety Report 6562009-1 (Version None)
Quarter: 2010Q1

REPORT INFORMATION
  Report Type: 
  Country: None (occurrence: None)
  Receive Date: 20100130
  Receipt Date: 20091230
  Transmission Date: 20100710
  Serious: No
  Sender: FDA-Public Use
  Company Number: US-ABBOTT-08P-163-0494909-00

PATIENT
  Sex: Female
  Weight: 81.72 kg

DRUGS (10)
  1. HUMIRA [Suspect]
     Indication: RHEUMATOID ARTHRITIS
     Route: 058
     Dates: start: 20070701, end: 20071201
  2. HUMIRA [Suspect]
     Indication: PSORIATIC ARTHROPATHY
     Route: 058
     Dates: start: 20080201, end: 20080701
  3. HUMIRA [Suspect]
     Route: 058
     Dates: start: 20080701
  4. NORCO [Concomitant]
     Indication: BREAKTHROUGH PAIN
  5. NORCO [Concomitant]
     Indication: ARTHRALGIA
  6. VALIUM [Concomitant]
     Indication: ANXIETY
  7. PROZAC [Concomitant]
     Indication: ANXIETY
  8. VITAMIN B-12 [Concomitant]
     Indication: SWELLING
     Route: 050
     Dates: start: 20060101
  9. VITAMIN B-12 [Concomitant]
     Indication: PAIN
  10. METOPROLOL [Concomitant]
     Indication: HYPERTENSION
     Route: 048

REACTIONS (11)
  - ABASIA [None]
  - ARTHRALGIA [None]
  - BREATH SOUNDS ABNORMAL [None]
  - CONTUSION [None]
  - COUGH [None]
  - FALL [None]
  - JOINT SWELLING [None]
  - LIGAMENT RUPTURE [None]
  - MENISCUS LESION [None]
  - NASOPHARYNGITIS [None]
  - SENSORY DISTURBANCE [None]
